FAERS Safety Report 18479799 (Version 2)
Quarter: 2020Q4

REPORT INFORMATION
  Report Type: Spontaneous
  Country: US (occurrence: US)
  Receive Date: 20201109
  Receipt Date: 20201112
  Transmission Date: 20210114
  Serious: Yes (Hospitalization)
  Sender: FDA-Public Use
  Company Number: US-NOVOPROD-764840

PATIENT
  Age: 56 Year
  Sex: Male

DRUGS (7)
  1. NOVOLOG [Suspect]
     Active Substance: INSULIN ASPART
     Dosage: UNK
     Route: 065
  2. NOVOLOG [Suspect]
     Active Substance: INSULIN ASPART
     Dosage: UNK
     Route: 065
  3. NOVOLOG [Suspect]
     Active Substance: INSULIN ASPART
     Indication: PRODUCT USED FOR UNKNOWN INDICATION
     Dosage: UNK
     Route: 065
     Dates: start: 20200101
  4. NOVOLOG [Suspect]
     Active Substance: INSULIN ASPART
     Dosage: UNK
     Route: 065
  5. NOVOLOG [Suspect]
     Active Substance: INSULIN ASPART
     Indication: PRODUCT USED FOR UNKNOWN INDICATION
     Dosage: UNK
     Route: 065
     Dates: start: 20200101
  6. LANTUS [Concomitant]
     Active Substance: INSULIN GLARGINE
     Indication: PRODUCT USED FOR UNKNOWN INDICATION
     Dosage: UNK
     Route: 065
  7. NOVOLOG [Suspect]
     Active Substance: INSULIN ASPART
     Dosage: UNK
     Route: 065

REACTIONS (2)
  - Hepatitis A [Not Recovered/Not Resolved]
  - Renal failure [Not Recovered/Not Resolved]

NARRATIVE: CASE EVENT DATE: 20200119
